FAERS Safety Report 9069884 (Version 1)
Quarter: 2013Q1

REPORT INFORMATION
  Report Type: Spontaneous
  Country: PT (occurrence: PT)
  Receive Date: 20130215
  Receipt Date: 20130215
  Transmission Date: 20140127
  Serious: Yes (Death, Other)
  Sender: FDA-Public Use
  Company Number: PT-ABBOTT-13P-130-1050580-00

PATIENT
  Sex: Female

DRUGS (2)
  1. ERYTHROMYCIN [Suspect]
     Indication: MATERNAL EXPOSURE TIMING UNSPECIFIED
     Route: 064
  2. AMOXICILLIN [Suspect]
     Indication: MATERNAL EXPOSURE TIMING UNSPECIFIED
     Route: 064

REACTIONS (20)
  - Craniocerebral injury [Fatal]
  - Foetal exposure during pregnancy [Unknown]
  - Pallor [Unknown]
  - Hypotonia [Unknown]
  - Bradycardia [Unknown]
  - Neonatal respiratory arrest [Unknown]
  - Areflexia [Unknown]
  - Apgar score low [Unknown]
  - Congenital neurological disorder [Unknown]
  - Premature baby [Unknown]
  - Altered state of consciousness [Unknown]
  - Pupil fixed [Unknown]
  - Periventricular leukomalacia [Fatal]
  - Thalamic infarction [Fatal]
  - White matter lesion [Fatal]
  - Brain stem ischaemia [Fatal]
  - Congenital central nervous system anomaly [Fatal]
  - Foetal hypokinesia [Unknown]
  - Tachycardia foetal [Unknown]
  - Gliosis [Fatal]
